FAERS Safety Report 7865200-7 (Version None)
Quarter: 2011Q4

REPORT INFORMATION
  Report Type: 
  Country: None (occurrence: None)
  Receive Date: 20111028
  Receipt Date: 20101029
  Transmission Date: 20120403
  Serious: No
  Sender: FDA-Public Use
  Company Number: US-GLAXOSMITHKLINE-A0889719A

PATIENT
  Age: 67 Year
  Sex: Female

DRUGS (9)
  1. DIOVAN [Concomitant]
  2. ZOLOFT [Concomitant]
  3. LEVOTHYROXINE SODIUM [Concomitant]
  4. NITROGLYCERIN [Concomitant]
  5. PROAIR HFA [Concomitant]
  6. ADVAIR DISKUS 100/50 [Suspect]
     Indication: ASTHMA
     Dosage: 1PUFF TWICE PER DAY
     Route: 055
     Dates: start: 20090701
  7. ALPRAZOLAM [Concomitant]
  8. BONIVA [Concomitant]
  9. CITALOPRAM HYDROBROMIDE [Concomitant]

REACTIONS (2)
  - PRODUCT QUALITY ISSUE [None]
  - DRUG INEFFECTIVE [None]
